FAERS Safety Report 11292489 (Version 3)
Quarter: 2016Q4

REPORT INFORMATION
  Report Type: Spontaneous
  Country: GR (occurrence: GR)
  Receive Date: 20150722
  Receipt Date: 20161026
  Transmission Date: 20170206
  Serious: Yes (Death, Hospitalization)
  Sender: FDA-Public Use
  Company Number: GR-PFIZER INC-2015244275

PATIENT
  Age: 37 Year
  Sex: Female

DRUGS (2)
  1. METHYLPREDNISOLONE. [Suspect]
     Active Substance: METHYLPREDNISOLONE
     Indication: RENAL TRANSPLANT
     Dosage: LOW DOSES
  2. TACROLIMUS. [Suspect]
     Active Substance: TACROLIMUS
     Indication: RENAL TRANSPLANT
     Dosage: UNK

REACTIONS (5)
  - Epstein-Barr virus infection [Unknown]
  - Coxsackie viral infection [Unknown]
  - Parvovirus B19 infection [Unknown]
  - Histiocytosis haematophagic [Unknown]
  - Shock [Fatal]
